FAERS Safety Report 15494773 (Version 1)
Quarter: 2018Q4

REPORT INFORMATION
  Report Type: Spontaneous
  Country: FR (occurrence: FR)
  Receive Date: 20181012
  Receipt Date: 20181012
  Transmission Date: 20190205
  Serious: Yes (Hospitalization)
  Sender: FDA-Public Use
  Company Number: FR-SAKK-2018SA278610AA

PATIENT
  Age: 92 Year
  Sex: Female
  Weight: 70 kg

DRUGS (6)
  1. XARELTO [Suspect]
     Active Substance: RIVAROXABAN
     Indication: POISONING DELIBERATE
     Dosage: 7 DF, 1X
     Route: 048
     Dates: start: 20180814, end: 20180814
  2. LASILIX FAIBLE [Suspect]
     Active Substance: FUROSEMIDE
     Indication: POISONING DELIBERATE
     Dosage: 7 DF, 1X
     Route: 048
     Dates: start: 20180814, end: 20180814
  3. DOXYLAMINE SUCCINATE. [Suspect]
     Active Substance: DOXYLAMINE SUCCINATE
     Indication: POISONING DELIBERATE
     Dosage: 7 DF, 1X
     Route: 048
     Dates: start: 20180814, end: 20180814
  4. DEPAKOTE [Suspect]
     Active Substance: DIVALPROEX SODIUM
     Indication: POISONING DELIBERATE
     Dosage: 14 DF, 1X
     Route: 048
     Dates: start: 20180814, end: 20180814
  5. HEMIGOXINE NATIVELLE [Suspect]
     Active Substance: DIGOXIN
     Indication: POISONING DELIBERATE
     Dosage: 7 DF, 1X
     Route: 048
     Dates: start: 20180814, end: 20180814
  6. RISPERIDONE. [Suspect]
     Active Substance: RISPERIDONE
     Indication: POISONING DELIBERATE
     Dosage: 21 MG, 1X
     Route: 048
     Dates: start: 20180814, end: 20180814

REACTIONS (5)
  - Acute kidney injury [Recovered/Resolved]
  - Intentional overdose [Unknown]
  - Prothrombin time shortened [Recovered/Resolved]
  - Somnolence [Recovered/Resolved]
  - Hypotension [Recovered/Resolved]

NARRATIVE: CASE EVENT DATE: 20180814
